FAERS Safety Report 7265841-4 (Version None)
Quarter: 2011Q1

REPORT INFORMATION
  Report Type: 
  Country: None (occurrence: None)
  Receive Date: 20110131
  Receipt Date: 20110126
  Transmission Date: 20110831
  Serious: Yes (Other)
  Sender: FDA-Public Use
  Company Number: A0909319A

PATIENT
  Age: 18 Year
  Sex: Female

DRUGS (1)
  1. PROMACTA [Suspect]
     Indication: AUTOIMMUNE THROMBOCYTOPENIA
     Dosage: 50MG PER DAY
     Dates: start: 20100824, end: 20101018

REACTIONS (2)
  - DIZZINESS [None]
  - SYNCOPE [None]
